FAERS Safety Report 9095527 (Version 3)
Quarter: 2013Q4

REPORT INFORMATION
  Report Type: Spontaneous
  Country: IT (occurrence: None)
  Receive Date: 20130124
  Receipt Date: 20131010
  Transmission Date: 20140711
  Serious: Yes (Hospitalization)
  Sender: FDA-Public Use
  Company Number: 2013IT001022

PATIENT
  Age: 80 Year
  Sex: Male
  Weight: 70 kg

DRUGS (3)
  1. PONATINIB [Suspect]
     Indication: CHRONIC MYELOID LEUKAEMIA
     Route: 048
     Dates: start: 20110804, end: 20130110
  2. ASPIRINETAS (ACETYLSALICYLIC ACID) [Concomitant]
  3. ALLOPURINOL [Concomitant]

REACTIONS (4)
  - Ischaemic stroke [None]
  - Cerebrovascular accident [None]
  - Confusional state [None]
  - Hypertension [None]
